FAERS Safety Report 13086982 (Version 1)
Quarter: 2017Q1

REPORT INFORMATION
  Report Type: Spontaneous
  Country: DE (occurrence: DE)
  Receive Date: 20170105
  Receipt Date: 20170105
  Transmission Date: 20170428
  Serious: Yes (Life-Threatening, Hospitalization, Other)
  Sender: FDA-Public Use
  Company Number: DE-AMGEN-DEUSP2017000322

PATIENT
  Sex: Female

DRUGS (16)
  1. CERTOPARINUM NATRICUM [Concomitant]
     Indication: PROPHYLAXIS
     Dosage: 8000 IU, QD
     Route: 058
  2. PEGFILGRASTIM [Suspect]
     Active Substance: PEGFILGRASTIM
     Indication: B-CELL LYMPHOMA
     Dosage: 6 MG, ONE TIME DOSE (1 TIMES A DAY FOR 1 DAY)
     Route: 058
     Dates: start: 20161009, end: 20161009
  3. MACROGOL 3350 W/POTASSIUM CHLORIDE [Concomitant]
     Indication: CONSTIPATION
     Dosage: UNK, 1 BAG 1-0-0
     Route: 048
  4. FOLIC ACID. [Concomitant]
     Active Substance: FOLIC ACID
     Indication: PROPHYLAXIS
     Dosage: 4 MG, QD
     Route: 048
  5. VINCRISTINE [Suspect]
     Active Substance: VINCRISTINE
     Indication: B-CELL LYMPHOMA
     Dosage: 2 MG, ONE TIME DOSE (1 TIMES A DAY FOR 1 DAY)
     Route: 042
     Dates: start: 20161006, end: 20161006
  6. NATRIUMPICOSULFAT [Concomitant]
     Indication: CONSTIPATION
     Dosage: 10 DROPS, AS NECESSARY
     Route: 048
  7. RITUXIMAB [Suspect]
     Active Substance: RITUXIMAB
     Indication: B-CELL LYMPHOMA
     Dosage: 579 MG, ONE TIME DOSE (1 TIMES A DAY FOR 1 DAY)
     Route: 042
     Dates: start: 20161006, end: 20161006
  8. DOXORUBICINE [Suspect]
     Active Substance: DOXORUBICIN
     Indication: B-CELL LYMPHOMA
     Dosage: 75 MG, ONE TIME DOSE (1 TIMES A DAY FOR 1 DAY)
     Route: 042
     Dates: start: 20161006, end: 20161006
  9. PREDNISOLONE. [Suspect]
     Active Substance: PREDNISOLONE
     Indication: B-CELL LYMPHOMA
     Dosage: 100 MG, QD FOR 5 DAYS
     Route: 048
     Dates: start: 20161006, end: 20161010
  10. ACICLOVIR [Concomitant]
     Active Substance: ACYCLOVIR
     Indication: PROPHYLAXIS
     Dosage: 400 MG, QID
     Route: 048
  11. ZOPICLON [Concomitant]
     Active Substance: ZOPICLONE
     Indication: SLEEP DISORDER
     Dosage: 7.5 MG, QD
     Route: 048
  12. COLECALCIFEROL [Concomitant]
     Active Substance: CHOLECALCIFEROL
     Indication: VITAMIN SUPPLEMENTATION
     Dosage: 20000 IU, 1-0-0 ONLY MONDAY/ THURSDAY
     Route: 048
  13. CYCLOPHOSPHAMIDE. [Suspect]
     Active Substance: CYCLOPHOSPHAMIDE
     Indication: B-CELL LYMPHOMA
     Dosage: 1125 MG, ONE TIME DOSE (1 TIMES A DAY FOR 1 DAY)
     Route: 042
     Dates: start: 20161006, end: 20161006
  14. AMPHOTERICIN B. [Concomitant]
     Active Substance: AMPHOTERICIN B
     Indication: PROPHYLAXIS
     Dosage: UNK 2 PIP 1-1-1-1
     Route: 048
  15. PANTOPRAZOL [Suspect]
     Active Substance: PANTOPRAZOLE SODIUM
     Indication: PROPHYLAXIS
     Dosage: 40 MG, QD
     Route: 048
  16. CIPROFLOXACIN. [Concomitant]
     Active Substance: CIPROFLOXACIN
     Indication: PROPHYLAXIS
     Dosage: 500 MG, 1-0-1 (IF LEUCOCYTES {100/MCGL)
     Route: 048

REACTIONS (2)
  - Urinary tract infection [Recovered/Resolved]
  - Sepsis [Recovered/Resolved]

NARRATIVE: CASE EVENT DATE: 20161016
